FAERS Safety Report 4359476-0 (Version None)
Quarter: 2004Q2

REPORT INFORMATION
  Report Type: 
  Country: None (occurrence: None)
  Receive Date: 20040511
  Receipt Date: 20040426
  Transmission Date: 20050107
  Serious: Yes (Other)
  Sender: FDA-Public Use
  Company Number: A-CH2004-05677

PATIENT
  Age: 82 Year
  Sex: Female
  Weight: 56 kg

DRUGS (6)
  1. TRACLEER [Suspect]
     Indication: PULMONARY HYPERTENSION
     Dosage: 125 MG, BID, ORAL
     Route: 048
     Dates: start: 20031202, end: 20040309
  2. DIOVAN ^CIBA-GEIGY^ (VALSARTAN) [Concomitant]
  3. DILZEM ^ELAN^ (DILTIAZEM HYDROCHLORIDE) [Concomitant]
  4. TOREM (TORASEMIDE) [Concomitant]
  5. LIBRAX [Concomitant]
  6. OMEPRAZOLE [Concomitant]

REACTIONS (1)
  - HEPATITIS CHOLESTATIC [None]
